FAERS Safety Report 23389594 (Version 1)
Quarter: 2024Q1

REPORT INFORMATION
  Report Type: Spontaneous
  Country: US (occurrence: US)
  Receive Date: 20240111
  Receipt Date: 20240111
  Transmission Date: 20240410
  Serious: Yes (Hospitalization, Congenital Anomaly, Other)
  Sender: FDA-Public Use
  Company Number: US-STRIDES PHARMA UK LTD.-2023SP014659

PATIENT

DRUGS (2)
  1. DUTASTERIDE [Suspect]
     Active Substance: DUTASTERIDE
     Indication: Product used for unknown indication
     Dosage: UNK (PATIENT MOTHER RECEIVED DURING PREGNANCY)
     Route: 064
  2. SPIRONOLACTONE [Suspect]
     Active Substance: SPIRONOLACTONE
     Indication: Product used for unknown indication
     Dosage: UNK (PATIENT MOTHER RECEIVED DURING PREGNANCY)
     Route: 064

REACTIONS (2)
  - Genitalia external ambiguous [Unknown]
  - Foetal exposure during pregnancy [Unknown]
